FAERS Safety Report 8310678 (Version 5)
Quarter: 2015Q2

REPORT INFORMATION
  Report Type: Report from Study
  Country: US (occurrence: US)
  Receive Date: 20111226
  Receipt Date: 20150428
  Transmission Date: 20150821
  Serious: Yes (Hospitalization)
  Sender: FDA-Public Use
  Company Number: US-BIOGENIDEC-2011BI047849

PATIENT
  Age: 66 Year
  Sex: Female

DRUGS (2)
  1. TYSABRI [Suspect]
     Active Substance: NATALIZUMAB
     Indication: MULTIPLE SCLEROSIS
     Route: 042
     Dates: start: 20080523
  2. AMPYRA [Concomitant]
     Active Substance: DALFAMPRIDINE
     Indication: MULTIPLE SCLEROSIS
     Dates: start: 20080523

REACTIONS (12)
  - Spinal deformity [Recovered/Resolved]
  - Weight decreased [Recovered/Resolved]
  - Multiple sclerosis [Recovered/Resolved]
  - Monoparesis [Not Recovered/Not Resolved]
  - Drug specific antibody present [Unknown]
  - Muscle spasticity [Recovered/Resolved]
  - Spinal column stenosis [Recovered/Resolved]
  - Multiple sclerosis relapse [Recovered/Resolved]
  - Osteoporosis [Recovered/Resolved]
  - Leukopenia [Not Recovered/Not Resolved]
  - Arthritis [Recovered/Resolved]
  - Foot fracture [Recovered/Resolved]

NARRATIVE: CASE EVENT DATE: 2011
